FAERS Safety Report 21304946 (Version 3)
Quarter: 2022Q3

REPORT INFORMATION
  Report Type: Other
  Country: None (occurrence: US)
  Receive Date: 20220907
  Receipt Date: 20220919
  Transmission Date: 20221026
  Serious: No
  Sender: FDA-Public Use
  Company Number: US-Mission Pharmacal Company-2132642

PATIENT
  Age: 32 Year
  Sex: Female

DRUGS (1)
  1. THIOLA EC [Suspect]
     Active Substance: TIOPRONIN
     Indication: Cystinuria
     Route: 048
     Dates: start: 20220708

REACTIONS (7)
  - Pneumaturia [Unknown]
  - Muscle spasms [Unknown]
  - Decreased appetite [Unknown]
  - Bowel movement irregularity [Unknown]
  - Proteinuria [Unknown]
  - Arthralgia [Unknown]
  - Swelling [Unknown]
